FAERS Safety Report 13166908 (Version 1)
Quarter: 2017Q1

REPORT INFORMATION
  Report Type: Spontaneous
  Country: US (occurrence: US)
  Receive Date: 20170127
  Receipt Date: 20170127
  Transmission Date: 20170428
  Serious: No
  Sender: FDA-Public Use
  Company Number: None

PATIENT
  Age: 66 Year
  Sex: Male
  Weight: 124 kg

DRUGS (2)
  1. SUSTOL [Suspect]
     Active Substance: GRANISETRON
     Indication: BREAST CANCER
     Dosage: BEGINNING DATE OF USE GIVEN 12-1-17 ?10MG EVERY 7 DAYS SUB-Q
     Route: 058
     Dates: start: 20170112, end: 20170113
  2. SUSTOL [Suspect]
     Active Substance: GRANISETRON
     Indication: NAUSEA
     Dosage: BEGINNING DATE OF USE GIVEN 12-1-17 ?10MG EVERY 7 DAYS SUB-Q
     Route: 058
     Dates: start: 20170112, end: 20170113

REACTIONS (2)
  - Dry mouth [None]
  - Ageusia [None]
